FAERS Safety Report 16254968 (Version 3)
Quarter: 2019Q3

REPORT INFORMATION
  Report Type: Report from Study
  Country: US (occurrence: US)
  Receive Date: 20190430
  Receipt Date: 20190722
  Transmission Date: 20191004
  Serious: Yes (Other)
  Sender: FDA-Public Use
  Company Number: PHEH2019US018157

PATIENT
  Sex: Male

DRUGS (1)
  1. ENTRESTO [Suspect]
     Active Substance: SACUBITRIL\VALSARTAN
     Indication: PRODUCT USED FOR UNKNOWN INDICATION
     Dosage: UNK
     Route: 065

REACTIONS (12)
  - Hernia [Unknown]
  - Myocardial infarction [Unknown]
  - Atrioventricular block [Unknown]
  - Hypertension [Unknown]
  - Cardiac failure congestive [Unknown]
  - Appendicitis [Unknown]
  - Thrombosis [Unknown]
  - Colon cancer [Unknown]
  - Diabetes mellitus [Unknown]
  - Deafness unilateral [Unknown]
  - Renal failure [Unknown]
  - Dizziness [Unknown]
